FAERS Safety Report 4394624-8 (Version None)
Quarter: 2004Q3

REPORT INFORMATION
  Report Type: 
  Country: None (occurrence: None)
  Receive Date: 20040706
  Receipt Date: 20040623
  Transmission Date: 20050211
  Serious: Yes (Other)
  Sender: FDA-Public Use
  Company Number: 2004042908

PATIENT
  Sex: Female

DRUGS (4)
  1. ZYRTEC [Suspect]
     Indication: HYPERSENSITIVITY
  2. ZYRTEC-D 12 HOUR [Suspect]
     Indication: HYPERSENSITIVITY
  3. LORATADINE [Suspect]
     Indication: HYPERSENSITIVITY
  4. LORATADINE [Suspect]
     Indication: HYPERSENSITIVITY

REACTIONS (1)
  - LIVER DISORDER [None]
